FAERS Safety Report 5721733 (Version 5)
Quarter: 2016Q4

REPORT INFORMATION
  Report Type: Spontaneous
  Country: US (occurrence: US)
  Receive Date: 20050103
  Receipt Date: 20161025
  Transmission Date: 20170207
  Serious: No
  Sender: FDA-Public Use
  Company Number: US-ASTRAZENECA-2004UW21305

PATIENT
  Age: 46 Year
  Sex: Female
  Weight: 66.2 kg

DRUGS (9)
  1. CRESTOR [Suspect]
     Active Substance: ROSUVASTATIN CALCIUM
     Indication: BLOOD CHOLESTEROL INCREASED
     Route: 048
  2. CRESTOR [Suspect]
     Active Substance: ROSUVASTATIN CALCIUM
     Indication: BLOOD CHOLESTEROL INCREASED
     Route: 048
  3. POTASSIUM CITRATE. [Concomitant]
     Active Substance: POTASSIUM CITRATE
  4. ALEVE [Concomitant]
     Active Substance: NAPROXEN SODIUM
  5. KLONOPIN [Concomitant]
     Active Substance: CLONAZEPAM
  6. BABY ASPIRIN [Concomitant]
     Active Substance: ASPIRIN
  7. CRESTOR [Suspect]
     Active Substance: ROSUVASTATIN CALCIUM
     Indication: BLOOD CHOLESTEROL INCREASED
     Route: 048
     Dates: start: 20040923
  8. TRILEPTAL [Concomitant]
     Active Substance: OXCARBAZEPINE
  9. LOVAZA [Concomitant]
     Active Substance: OMEGA-3-ACID ETHYL ESTERS

REACTIONS (17)
  - Face injury [Unknown]
  - Malaise [Unknown]
  - Abdominal pain [Unknown]
  - Constipation [Unknown]
  - Hepatic mass [Unknown]
  - Pancreatic neoplasm [Unknown]
  - Dysphonia [Unknown]
  - Hepatic neoplasm [Unknown]
  - Faeces discoloured [Unknown]
  - Mastication disorder [Unknown]
  - Gait disturbance [Unknown]
  - Weight decreased [Unknown]
  - Drug dose omission [Unknown]
  - Back pain [Unknown]
  - Anxiety [Unknown]
  - Stress [Unknown]
  - Ligament sprain [Unknown]
